FAERS Safety Report 7630754-2 (Version None)
Quarter: 2011Q3

REPORT INFORMATION
  Report Type: 
  Country: None (occurrence: None)
  Receive Date: 20110722
  Receipt Date: 20110714
  Transmission Date: 20111222
  Serious: Yes (Hospitalization)
  Sender: FDA-Public Use
  Company Number: AT-GENENTECH-321522

PATIENT
  Age: 67 Year
  Sex: Female

DRUGS (7)
  1. BISOPROLOL FUMARATE [Concomitant]
     Indication: HYPERTENSION
     Dosage: 0.5 DF, UNK
     Route: 048
  2. MABTHERA [Suspect]
     Indication: RHEUMATOID ARTHRITIS
     Dosage: 500 MG, UNK
     Route: 042
     Dates: start: 20090820, end: 20101221
  3. METHOTREXATE [Concomitant]
     Indication: RHEUMATOID ARTHRITIS
     Dosage: 10 MG, 1/WEEK
     Route: 048
     Dates: start: 20010101
  4. FOLIC ACID [Concomitant]
     Indication: PROPHYLAXIS
     Dosage: 5 MG, 1/WEEK
     Route: 048
     Dates: start: 20010101
  5. LEFLUNOMIDE [Concomitant]
     Indication: RHEUMATOID ARTHRITIS
     Dosage: 20 MG, Q2D
     Route: 048
     Dates: start: 20091201
  6. LEVOMEPROMAZINE [Concomitant]
     Indication: ANXIETY
     Dosage: 0.5 DF, UNK
     Route: 048
  7. BROTIZOLAM [Concomitant]
     Indication: SLEEP DISORDER
     Dosage: 0.5 DF, UNK
     Route: 048

REACTIONS (1)
  - BREAST NEOPLASM [None]
